FAERS Safety Report 12314368 (Version 1)
Quarter: 2016Q2

REPORT INFORMATION
  Report Type: Spontaneous
  Country: US (occurrence: None)
  Receive Date: 20160427
  Receipt Date: 20160427
  Transmission Date: 20160815
  Serious: Yes (Other)
  Sender: FDA-Public Use
  Company Number: None

PATIENT
  Sex: Male

DRUGS (2)
  1. PRALUENT [Suspect]
     Active Substance: ALIROCUMAB
     Indication: HYPERLIPIDAEMIA
     Route: 058
     Dates: start: 201512
  2. PRALUENT [Suspect]
     Active Substance: ALIROCUMAB
     Indication: FILARIASIS
     Route: 058
     Dates: start: 201512

REACTIONS (6)
  - Back pain [None]
  - Diarrhoea [None]
  - Muscle spasms [None]
  - Muscle twitching [None]
  - Neck pain [None]
  - Insomnia [None]
